FAERS Safety Report 5527565-0 (Version None)
Quarter: 2007Q4

REPORT INFORMATION
  Report Type: 
  Country: None (occurrence: None)
  Receive Date: 20071128
  Receipt Date: 20071116
  Transmission Date: 20080405
  Serious: Yes (Other)
  Sender: FDA-Public Use
  Company Number: US-ELI_LILLY_AND_COMPANY-US200710000657

PATIENT
  Age: 78 Year
  Sex: Female
  Weight: 51.701 kg

DRUGS (4)
  1. FORTEO [Suspect]
     Indication: OSTEOPOROSIS
     Dosage: 20 UG, DAILY (1/D)
     Dates: start: 20070301, end: 20070101
  2. FORTEO [Suspect]
     Dosage: UNK, UNK
     Dates: start: 20070101
  3. CALCIUM [Concomitant]
     Dosage: 1 G, UNK
  4. VITAMIN D [Concomitant]
     Dosage: 800 U, UNK

REACTIONS (1)
  - BLOOD CALCIUM INCREASED [None]
